FAERS Safety Report 9958223 (Version 1)
Quarter: 2014Q1

REPORT INFORMATION
  Report Type: Report from Study
  Country: US (occurrence: US)
  Receive Date: 20140304
  Receipt Date: 20140304
  Transmission Date: 20141002
  Serious: No
  Sender: FDA-Public Use
  Company Number: US-ABBVIE-13P-163-1093422-00

PATIENT
  Age: 69 Year
  Sex: Male

DRUGS (3)
  1. HUMIRA [Suspect]
     Indication: PSORIASIS
     Route: 058
     Dates: start: 20130523, end: 20130523
  2. HUMIRA [Suspect]
     Dosage: DAY 8
     Route: 058
  3. HUMIRA [Suspect]
     Route: 058

REACTIONS (4)
  - Chills [Unknown]
  - Rash [Unknown]
  - Influenza [Unknown]
  - Myalgia [Unknown]
